FAERS Safety Report 8258416-1 (Version None)
Quarter: 2012Q2

REPORT INFORMATION
  Report Type: 
  Country: None (occurrence: None)
  Receive Date: 20120404
  Receipt Date: 20120329
  Transmission Date: 20120825
  Serious: Yes (Other)
  Sender: FDA-Public Use
  Company Number: US-BAYER-2012-031220

PATIENT
  Sex: Female

DRUGS (2)
  1. ALEVE (CAPLET) [Suspect]
     Indication: ANALGESIC THERAPY
  2. ALEVE (CAPLET) [Suspect]
     Indication: ARTHRALGIA
     Dosage: 2 DF, ONCE
     Route: 048
     Dates: start: 20120328, end: 20120328

REACTIONS (6)
  - VOMITING [None]
  - BURNING SENSATION [None]
  - URTICARIA [None]
  - MALAISE [None]
  - HYPERSENSITIVITY [None]
  - PRURITUS GENERALISED [None]
